FAERS Safety Report 9085643 (Version 1)
Quarter: 2013Q1

REPORT INFORMATION
  Report Type: Spontaneous
  Country: PR (occurrence: PR)
  Receive Date: 20130130
  Receipt Date: 20130130
  Transmission Date: 20140127
  Serious: No
  Sender: FDA-Public Use
  Company Number: PR-ABBOTT-12P-131-0988751-00

PATIENT
  Sex: Female
  Weight: 80.81 kg

DRUGS (11)
  1. HUMIRA [Suspect]
     Indication: RHEUMATOID ARTHRITIS
     Route: 058
  2. METHOTREXATE [Concomitant]
     Indication: RHEUMATOID ARTHRITIS
     Dosage: 15MG WEEKLY, 6 TABLETS WEEKLY
     Route: 048
  3. PREDNISONE [Concomitant]
     Indication: RHEUMATOID ARTHRITIS
     Route: 048
  4. ULTRACET [Concomitant]
     Indication: RHEUMATOID ARTHRITIS
     Route: 048
  5. ULTRACET [Concomitant]
     Indication: PAIN
  6. VOLTAREN [Concomitant]
     Indication: RHEUMATOID ARTHRITIS
     Route: 048
     Dates: start: 201209
  7. CATAPRES [Concomitant]
     Indication: HYPERTENSION
     Route: 048
  8. CARDIZEM [Concomitant]
     Indication: HYPERTENSION
     Route: 048
  9. HYZAAR [Concomitant]
     Indication: HYPERTENSION
     Dosage: 100/25MG
     Route: 048
  10. SYNTHROID [Concomitant]
     Indication: HYPOTHYROIDISM
     Route: 048
  11. PRILOSEC [Concomitant]
     Indication: GASTRITIS
     Route: 048

REACTIONS (1)
  - Cataract [Not Recovered/Not Resolved]
